FAERS Safety Report 25472670 (Version 1)
Quarter: 2025Q2

REPORT INFORMATION
  Report Type: Report from Study
  Country: US (occurrence: US)
  Receive Date: 20250624
  Receipt Date: 20250624
  Transmission Date: 20250716
  Serious: Yes (Life-Threatening, Other)
  Sender: CSL BEHRING
  Company Number: US-BEH-2025209764

PATIENT
  Age: 22 Year
  Sex: Female

DRUGS (2)
  1. HIZENTRA [Suspect]
     Active Substance: HUMAN IMMUNOGLOBULIN G
     Route: 065
  2. HIZENTRA [Suspect]
     Active Substance: HUMAN IMMUNOGLOBULIN G
     Route: 065

REACTIONS (6)
  - Hypersensitivity [Unknown]
  - Abdominal pain upper [Unknown]
  - Oropharyngeal discomfort [Unknown]
  - Throat tightness [Unknown]
  - Dizziness [Unknown]
  - Dyspnoea [Unknown]
